FAERS Safety Report 16601024 (Version 1)
Quarter: 2019Q3

REPORT INFORMATION
  Report Type: Spontaneous
  Country: FR (occurrence: FR)
  Receive Date: 20190719
  Receipt Date: 20190719
  Transmission Date: 20191004
  Serious: Yes (Other)
  Sender: FDA-Public Use
  Company Number: FR-TEVA-2019-FR-1079731

PATIENT
  Age: 74 Year
  Sex: Male

DRUGS (8)
  1. MONO TILDIEM [Concomitant]
     Active Substance: DILTIAZEM HYDROCHLORIDE
     Route: 048
  2. DUPHALAC, SOLUTION BUVABLE EN SACHET DOSE [Concomitant]
     Route: 048
  3. LANSOPRAZOLE MYLAN 15 MG, COMPRIME ORODISPERSIBLE [Concomitant]
     Route: 048
  4. TOVIAZ 8 MG, COMPRIME A LIBERATION PROLONGEE [Concomitant]
     Route: 048
  5. PRAVASTATINE ARROW GENERIQUES 20 MG, COMPRIME SECABLE [Concomitant]
     Route: 048
  6. KARDEGIC [Concomitant]
     Active Substance: ASPIRIN DL-LYSINE
     Route: 048
  7. COPAXONE [Suspect]
     Active Substance: GLATIRAMER ACETATE
     Indication: SECONDARY PROGRESSIVE MULTIPLE SCLEROSIS
     Route: 058
     Dates: start: 20110917
  8. PERINDOPRIL ARROW 2 MG COMPRIME [Concomitant]
     Active Substance: PERINDOPRIL ERBUMINE
     Route: 048

REACTIONS (1)
  - Basal cell carcinoma [Recovered/Resolved]

NARRATIVE: CASE EVENT DATE: 2014
